FAERS Safety Report 5683202-6 (Version None)
Quarter: 2008Q1

REPORT INFORMATION
  Report Type: 
  Country: None (occurrence: None)
  Receive Date: 20080327
  Receipt Date: 20080304
  Transmission Date: 20080703
  Serious: No
  Sender: FDA-Public Use
  Company Number: US-BOEHRINGER INGELHEIM GMBH, GERMANY-2008-BP-02388BP

PATIENT
  Age: 44 Year
  Sex: Female
  Weight: 64 kg

DRUGS (5)
  1. MIRAPEX [Suspect]
     Indication: RESTLESS LEGS SYNDROME
     Dates: end: 20071115
  2. FISH OIL [Concomitant]
     Dates: start: 20071008
  3. FERROUS SULFATE TAB [Concomitant]
     Dates: start: 20071008
  4. ASCORBIC ACID [Concomitant]
     Dates: start: 20071008
  5. ASPIRIN [Concomitant]
     Dates: start: 20040204

REACTIONS (1)
  - WEIGHT INCREASED [None]
